FAERS Safety Report 8847532 (Version 1)
Quarter: 2012Q4

REPORT INFORMATION
  Report Type: 
  Country: BR (occurrence: BR)
  Receive Date: 20121018
  Receipt Date: 20121018
  Transmission Date: 20130627
  Serious: Yes (Other)
  Sender: FDA-Public Use
  Company Number: BR-ASTRAZENECA-2011SE57574

PATIENT
  Age: 71 Year
  Sex: Male
  Weight: 62 kg

DRUGS (8)
  1. SELOZOK [Suspect]
     Indication: ARRHYTHMIA
     Route: 048
     Dates: start: 2009, end: 201205
  2. OMEPRAZOL [Suspect]
     Indication: PROPHYLAXIS AGAINST GASTROINTESTINAL ULCER
     Route: 048
     Dates: start: 2008
  3. ZOLADEX LA [Suspect]
     Indication: PROSTATIC SPECIFIC ANTIGEN INCREASED
     Dosage: 10.8 MG, QUARTERLY
     Route: 058
     Dates: start: 201209
  4. ZOLADEX LA [Suspect]
     Indication: PROSTATIC SPECIFIC ANTIGEN INCREASED
     Dosage: 1.8 MG
     Route: 058
  5. ASA [Concomitant]
     Route: 048
  6. CLONAZEPAM [Concomitant]
     Indication: INSOMNIA
     Dosage: AS REQUIRED.
     Route: 048
     Dates: start: 201202
  7. VASTAREL [Concomitant]
     Route: 048
     Dates: start: 201205
  8. CONCOR [Concomitant]
     Indication: ARRHYTHMIA
     Route: 048
     Dates: start: 201205

REACTIONS (4)
  - Prostatic specific antigen increased [Not Recovered/Not Resolved]
  - Arrhythmia [Unknown]
  - Hot flush [Not Recovered/Not Resolved]
  - Insomnia [Unknown]
